FAERS Safety Report 4649792-7 (Version None)
Quarter: 2005Q2

REPORT INFORMATION
  Report Type: 
  Country: None (occurrence: None)
  Receive Date: 20050428
  Receipt Date: 20050428
  Transmission Date: 20051028
  Serious: Yes (Life-Threatening, Hospitalization)
  Sender: FDA-Public Use
  Company Number: None

PATIENT
  Age: 62 Year
  Sex: Male
  Weight: 90.7194 kg

DRUGS (1)
  1. MOBIC [Suspect]
     Indication: INFLAMMATION
     Dosage: 1X DAILY
     Dates: start: 20040115, end: 20040130

REACTIONS (1)
  - MYOCARDIAL INFARCTION [None]
